FAERS Safety Report 7386742-7 (Version None)
Quarter: 2011Q1

REPORT INFORMATION
  Report Type: 
  Country: None (occurrence: None)
  Receive Date: 20110331
  Receipt Date: 20110326
  Transmission Date: 20110831
  Serious: Yes (Other)
  Sender: FDA-Public Use
  Company Number: MX-PFIZER INC-2011068397

PATIENT
  Age: 20 Month
  Sex: Female

DRUGS (1)
  1. DOSTINEX [Suspect]
     Route: 064

REACTIONS (4)
  - DRUG EXPOSURE DURING PREGNANCY [None]
  - GROWTH RETARDATION [None]
  - FOETAL GROWTH RESTRICTION [None]
  - DEVELOPMENTAL DELAY [None]
